FAERS Safety Report 8287101-5 (Version None)
Quarter: 2012Q2

REPORT INFORMATION
  Report Type: 
  Country: None (occurrence: None)
  Receive Date: 20120416
  Receipt Date: 20111006
  Transmission Date: 20120825
  Serious: Yes (Hospitalization, Disabling)
  Sender: FDA-Public Use
  Company Number: FR-ROCHE-1013077

PATIENT
  Sex: Male
  Weight: 103 kg

DRUGS (18)
  1. NITROGLYCERIN [Concomitant]
     Dates: start: 20110215
  2. LANTUS [Concomitant]
     Dates: start: 20100301
  3. MABTHERA [Suspect]
     Indication: CHRONIC LYMPHOCYTIC LEUKAEMIA
     Dates: start: 20110623, end: 20110818
  4. ASPIRIN [Concomitant]
     Dates: start: 20050901
  5. ATORVASTATIN [Concomitant]
     Dates: start: 20050901
  6. DIGOXIN [Concomitant]
     Dates: start: 20100301
  7. LERCANIDIPINE [Concomitant]
     Dates: start: 20100901
  8. NEBIVOLOL HCL [Concomitant]
  9. NOVORAPID [Concomitant]
     Dates: start: 20100301
  10. PHENOXYMETHYL PENICILLIN [Concomitant]
     Dates: start: 20090904
  11. LANTUS [Concomitant]
     Dosage: 28 UNIT IN THE EVENING
  12. NEBIVOLOL HCL [Concomitant]
     Dates: start: 20110428
  13. CYCLOPHOSPHAMIDE [Concomitant]
     Dates: start: 20110623, end: 20110822
  14. FLUDARABINE PHOSPHATE [Concomitant]
     Dates: start: 20110623, end: 20110822
  15. AMARYL [Concomitant]
     Dates: start: 20100301
  16. CHLORAMBUCIL [Suspect]
     Indication: CHRONIC LYMPHOCYTIC LEUKAEMIA
     Dosage: LAST DOSE PRIOR TO SAE 29 MAR 2011
     Route: 048
     Dates: start: 20111026
  17. PLAVIX [Concomitant]
     Route: 048
     Dates: start: 20110428
  18. PREVISCAN [Concomitant]
     Dates: start: 20101215

REACTIONS (1)
  - CEREBRAL ISCHAEMIA [None]
